FAERS Safety Report 4478501-X (Version None)
Quarter: 2004Q4

REPORT INFORMATION
  Report Type: 
  Country: None (occurrence: None)
  Receive Date: 20041018
  Receipt Date: 20041018
  Transmission Date: 20050328
  Serious: Yes (Other)
  Sender: FDA-Public Use
  Company Number: None

PATIENT
  Age: 35 Year
  Sex: Female
  Weight: 77.1115 kg

DRUGS (1)
  1. EFFEXOR [Suspect]
     Indication: DEPRESSION
     Dosage: 150 MG ONCE A DAY ORAL
     Route: 048
     Dates: start: 20020901, end: 20041010

REACTIONS (6)
  - DRUG WITHDRAWAL SYNDROME [None]
  - HOT FLUSH [None]
  - INFLUENZA LIKE ILLNESS [None]
  - NERVOUS SYSTEM DISORDER [None]
  - NIGHT SWEATS [None]
  - NIGHTMARE [None]
